FAERS Safety Report 7346310-X (Version None)
Quarter: 2011Q1

REPORT INFORMATION
  Report Type: 
  Country: None (occurrence: None)
  Receive Date: 20110311
  Receipt Date: 20100224
  Transmission Date: 20110831
  Serious: No
  Sender: FDA-Public Use
  Company Number: A0846242A

PATIENT
  Age: 86 Year
  Sex: Male

DRUGS (2)
  1. UNKNOWN [Concomitant]
  2. VUSION [Suspect]
     Dates: start: 20100203, end: 20100208

REACTIONS (1)
  - RASH [None]
